FAERS Safety Report 20866967 (Version 3)
Quarter: 2022Q3

REPORT INFORMATION
  Report Type: Spontaneous
  Country: JP (occurrence: None)
  Receive Date: 20220524
  Receipt Date: 20220708
  Transmission Date: 20221027
  Serious: Yes (Other)
  Sender: FDA-Public Use
  Company Number: 2022A191238

PATIENT
  Age: 40 Year
  Sex: Female

DRUGS (5)
  1. LYNPARZA [Suspect]
     Active Substance: OLAPARIB
     Indication: Ovarian cancer
     Route: 048
     Dates: start: 20201209, end: 20220105
  2. ESTRADIOL [Suspect]
     Active Substance: ESTRADIOL
     Indication: Artificial menopause
     Dosage: DOSE UNKNOWN
     Route: 062
     Dates: end: 20220328
  3. HERBALS [Concomitant]
     Active Substance: HERBALS
     Indication: Depression
     Dosage: DOSE UNKNOWN, PRESCRIBED BY ANOTHER HOSPITAL
     Route: 065
  4. LORAZEPAM [Concomitant]
     Active Substance: LORAZEPAM
     Indication: Depression
     Dosage: DOSE UNKNOWN, PRESCRIBED BY ANOTHER HOSPITAL
     Route: 065
  5. CLOTIAZEPAM [Concomitant]
     Active Substance: CLOTIAZEPAM
     Indication: Depression
     Dosage: AS REQUIRED, DOSE UNKNOWN, PRESCRIBED B ANOTHER HOSPITAL
     Route: 065

REACTIONS (1)
  - Immune thrombocytopenia [Recovered/Resolved]

NARRATIVE: CASE EVENT DATE: 20220105
